FAERS Safety Report 5893832-4 (Version None)
Quarter: 2008Q3

REPORT INFORMATION
  Report Type: 
  Country: None (occurrence: None)
  Receive Date: 20080923
  Receipt Date: 20071029
  Transmission Date: 20090109
  Serious: No
  Sender: FDA-Public Use
  Company Number: US-ASTRAZENECA-2007UW25172

PATIENT
  Age: 81 Year
  Sex: Female
  Weight: 63 kg

DRUGS (5)
  1. SEROQUEL [Suspect]
     Indication: PSYCHOMOTOR HYPERACTIVITY
     Dosage: 1/2 OF 25MG TABLET
     Route: 048
  2. XANAX [Concomitant]
     Route: 048
  3. ARICEPT [Concomitant]
     Route: 048
  4. LEXAPRO [Concomitant]
     Route: 048
  5. METAMUCIL [Concomitant]
     Indication: DIARRHOEA
     Route: 048

REACTIONS (6)
  - CONSTIPATION [None]
  - DIZZINESS [None]
  - FATIGUE [None]
  - MUSCLE SPASMS [None]
  - PAIN [None]
  - VISION BLURRED [None]
